FAERS Safety Report 7558964-3 (Version None)
Quarter: 2011Q2

REPORT INFORMATION
  Report Type: 
  Country: None (occurrence: None)
  Receive Date: 20110621
  Receipt Date: 20110609
  Transmission Date: 20111010
  Serious: Yes (Life-Threatening, Hospitalization)
  Sender: FDA-Public Use
  Company Number: CA-JNJFOC-20110606554

PATIENT
  Sex: Male

DRUGS (12)
  1. SIMPONI [Suspect]
     Indication: ANKYLOSING SPONDYLITIS
     Dosage: START DATE REPORTED AS FUTURE DATE ^28-JUN-2011^
     Route: 058
     Dates: start: 20100628
  2. GLURENORM [Concomitant]
  3. BACLOFEN [Concomitant]
  4. CRESTOR [Concomitant]
  5. ASPIRIN [Concomitant]
  6. ALLOPURINOL [Concomitant]
     Indication: GOUT
  7. CELEXA [Concomitant]
  8. GEMFIBROZIL [Concomitant]
  9. METFORMIN HCL [Concomitant]
  10. CALCIUM WITH VITAMIN D [Concomitant]
  11. FOSAMAX [Concomitant]
  12. METOPROLOL TARTRATE [Concomitant]

REACTIONS (2)
  - SEPSIS [None]
  - PNEUMONIA [None]
